FAERS Safety Report 7940941-1 (Version None)
Quarter: 2011Q4

REPORT INFORMATION
  Report Type: 
  Country: None (occurrence: None)
  Receive Date: 20111128
  Receipt Date: 20111115
  Transmission Date: 20120403
  Serious: Yes (Other)
  Sender: FDA-Public Use
  Company Number: GB-ELI_LILLY_AND_COMPANY-GB201111004596

PATIENT
  Age: 79 Year
  Sex: Female
  Weight: 46.7 kg

DRUGS (6)
  1. AMITRIPTYLINE HCL [Concomitant]
  2. ACETAMINOPHEN [Concomitant]
  3. MEBEVERINE [Concomitant]
  4. LEVOTHYROXINE SODIUM [Concomitant]
  5. FORTEO [Suspect]
     Indication: OSTEOPOROSIS
     Dosage: 20 UG, UNK
     Route: 058
     Dates: start: 20100525, end: 20111026
  6. PROCHLORPERAZINE [Concomitant]

REACTIONS (1)
  - BASOSQUAMOUS CARCINOMA OF SKIN [None]
